FAERS Safety Report 25934994 (Version 1)
Quarter: 2025Q4

REPORT INFORMATION
  Report Type: Spontaneous
  Country: EU (occurrence: EU)
  Receive Date: 20251017
  Receipt Date: 20251017
  Transmission Date: 20260118
  Serious: Yes (Other)
  Sender: MYLAN
  Company Number: None

PATIENT
  Age: 70 Year
  Sex: Female
  Weight: 65 kg

DRUGS (44)
  1. MIRTAZAPINE [Suspect]
     Active Substance: MIRTAZAPINE
     Indication: Product used for unknown indication
     Dosage: 10 MILLIGRAM, QD
     Dates: end: 20230717
  2. MIRTAZAPINE [Suspect]
     Active Substance: MIRTAZAPINE
     Dosage: 10 MILLIGRAM, QD
     Route: 048
     Dates: end: 20230717
  3. MIRTAZAPINE [Suspect]
     Active Substance: MIRTAZAPINE
     Dosage: 10 MILLIGRAM, QD
     Route: 048
     Dates: end: 20230717
  4. MIRTAZAPINE [Suspect]
     Active Substance: MIRTAZAPINE
     Dosage: 10 MILLIGRAM, QD
     Dates: end: 20230717
  5. SIMVASTATIN [Suspect]
     Active Substance: SIMVASTATIN
     Indication: Dyslipidaemia
     Dosage: UNK, QD
     Dates: end: 20230714
  6. SIMVASTATIN [Suspect]
     Active Substance: SIMVASTATIN
     Dosage: UNK, QD
     Route: 048
     Dates: end: 20230714
  7. SIMVASTATIN [Suspect]
     Active Substance: SIMVASTATIN
     Dosage: UNK, QD
     Route: 048
     Dates: end: 20230714
  8. SIMVASTATIN [Suspect]
     Active Substance: SIMVASTATIN
     Dosage: UNK, QD
     Dates: end: 20230714
  9. MIANSERIN [Suspect]
     Active Substance: MIANSERIN
     Indication: Product used for unknown indication
     Dosage: 10 MILLIGRAM, QD
     Dates: end: 20230717
  10. MIANSERIN [Suspect]
     Active Substance: MIANSERIN
     Dosage: 10 MILLIGRAM, QD
     Route: 048
     Dates: end: 20230717
  11. MIANSERIN [Suspect]
     Active Substance: MIANSERIN
     Dosage: 10 MILLIGRAM, QD
     Route: 048
     Dates: end: 20230717
  12. MIANSERIN [Suspect]
     Active Substance: MIANSERIN
     Dosage: 10 MILLIGRAM, QD
     Dates: end: 20230717
  13. TAGRISSO [Suspect]
     Active Substance: OSIMERTINIB
     Indication: Lung adenocarcinoma
     Dosage: UNK
  14. TAGRISSO [Suspect]
     Active Substance: OSIMERTINIB
     Dosage: UNK
     Route: 065
  15. TAGRISSO [Suspect]
     Active Substance: OSIMERTINIB
     Dosage: UNK
     Route: 065
  16. TAGRISSO [Suspect]
     Active Substance: OSIMERTINIB
     Dosage: UNK
  17. MOVICOL [Concomitant]
     Active Substance: POLYETHYLENE GLYCOL 3350\POTASSIUM CHLORIDE\SODIUM BICARBONATE\SODIUM CHLORIDE
     Dosage: UNK
  18. MOVICOL [Concomitant]
     Active Substance: POLYETHYLENE GLYCOL 3350\POTASSIUM CHLORIDE\SODIUM BICARBONATE\SODIUM CHLORIDE
     Dosage: UNK
     Route: 065
  19. MOVICOL [Concomitant]
     Active Substance: POLYETHYLENE GLYCOL 3350\POTASSIUM CHLORIDE\SODIUM BICARBONATE\SODIUM CHLORIDE
     Dosage: UNK
     Route: 065
  20. MOVICOL [Concomitant]
     Active Substance: POLYETHYLENE GLYCOL 3350\POTASSIUM CHLORIDE\SODIUM BICARBONATE\SODIUM CHLORIDE
     Dosage: UNK
  21. MORPHINE SULFATE [Concomitant]
     Active Substance: MORPHINE SULFATE
     Dosage: UNK
  22. MORPHINE SULFATE [Concomitant]
     Active Substance: MORPHINE SULFATE
     Dosage: UNK
     Route: 065
  23. MORPHINE SULFATE [Concomitant]
     Active Substance: MORPHINE SULFATE
     Dosage: UNK
     Route: 065
  24. MORPHINE SULFATE [Concomitant]
     Active Substance: MORPHINE SULFATE
     Dosage: UNK
  25. SKENAN [Concomitant]
     Active Substance: MORPHINE SULFATE
     Dosage: EXTENDED-RELEASE MICROGRANULES IN CAPSULE
  26. SKENAN [Concomitant]
     Active Substance: MORPHINE SULFATE
     Dosage: EXTENDED-RELEASE MICROGRANULES IN CAPSULE
     Route: 065
  27. SKENAN [Concomitant]
     Active Substance: MORPHINE SULFATE
     Dosage: EXTENDED-RELEASE MICROGRANULES IN CAPSULE
     Route: 065
  28. SKENAN [Concomitant]
     Active Substance: MORPHINE SULFATE
     Dosage: EXTENDED-RELEASE MICROGRANULES IN CAPSULE
  29. OMEPRAZOLE [Concomitant]
     Active Substance: OMEPRAZOLE
     Dosage: UNK
  30. OMEPRAZOLE [Concomitant]
     Active Substance: OMEPRAZOLE
     Dosage: UNK
     Route: 065
  31. OMEPRAZOLE [Concomitant]
     Active Substance: OMEPRAZOLE
     Dosage: UNK
     Route: 065
  32. OMEPRAZOLE [Concomitant]
     Active Substance: OMEPRAZOLE
     Dosage: UNK
  33. LORMETAZEPAM [Concomitant]
     Active Substance: LORMETAZEPAM
     Dosage: UNK, SCORED TABLET
  34. LORMETAZEPAM [Concomitant]
     Active Substance: LORMETAZEPAM
     Dosage: UNK, SCORED TABLET
     Route: 065
  35. LORMETAZEPAM [Concomitant]
     Active Substance: LORMETAZEPAM
     Dosage: UNK, SCORED TABLET
     Route: 065
  36. LORMETAZEPAM [Concomitant]
     Active Substance: LORMETAZEPAM
     Dosage: UNK, SCORED TABLET
  37. LYRICA [Concomitant]
     Active Substance: PREGABALIN
     Dosage: UNK
  38. LYRICA [Concomitant]
     Active Substance: PREGABALIN
     Dosage: UNK
     Route: 065
  39. LYRICA [Concomitant]
     Active Substance: PREGABALIN
     Dosage: UNK
     Route: 065
  40. LYRICA [Concomitant]
     Active Substance: PREGABALIN
     Dosage: UNK
  41. XANAX [Concomitant]
     Active Substance: ALPRAZOLAM
     Dosage: UNK, SCORED TABLET
  42. XANAX [Concomitant]
     Active Substance: ALPRAZOLAM
     Dosage: UNK, SCORED TABLET
     Route: 065
  43. XANAX [Concomitant]
     Active Substance: ALPRAZOLAM
     Dosage: UNK, SCORED TABLET
     Route: 065
  44. XANAX [Concomitant]
     Active Substance: ALPRAZOLAM
     Dosage: UNK, SCORED TABLET

REACTIONS (1)
  - Hepatic cytolysis [Recovering/Resolving]

NARRATIVE: CASE EVENT DATE: 20230629
